FAERS Safety Report 16542070 (Version 2)
Quarter: 2020Q3

REPORT INFORMATION
  Report Type: Report from Study
  Country: FR (occurrence: FR)
  Receive Date: 20190708
  Receipt Date: 20200703
  Transmission Date: 20201102
  Serious: Yes (Death, Other)
  Sender: FDA-Public Use
  Company Number: FR-JAZZ-2019-FR-009360

PATIENT
  Sex: Male
  Weight: 84 kg

DRUGS (1)
  1. DEFITELIO [Suspect]
     Active Substance: DEFIBROTIDE SODIUM
     Indication: VENOOCCLUSIVE LIVER DISEASE
     Dosage: 25 MG/KG/DAY
     Route: 042
     Dates: start: 20160303, end: 20160323

REACTIONS (1)
  - Acute graft versus host disease [Fatal]
